FAERS Safety Report 8354928-0 (Version None)
Quarter: 2012Q2

REPORT INFORMATION
  Report Type: 
  Country: None (occurrence: None)
  Receive Date: 20120511
  Receipt Date: 20120430
  Transmission Date: 20120825
  Serious: Yes (Other)
  Sender: FDA-Public Use
  Company Number: US-BRISTOL-MYERS SQUIBB COMPANY-16560914

PATIENT

DRUGS (1)
  1. LYSODREN [Suspect]

REACTIONS (2)
  - SKIN EXFOLIATION [None]
  - SEPSIS [None]
